FAERS Safety Report 22635734 (Version 1)
Quarter: 2023Q2

REPORT INFORMATION
  Report Type: Spontaneous
  Country: None (occurrence: RO)
  Receive Date: 20230623
  Receipt Date: 20230623
  Transmission Date: 20230722
  Serious: Yes (Other)
  Sender: FDA-Public Use
  Company Number: RO-Harrow Eye-2143053

PATIENT
  Age: 58 Year
  Sex: Female

DRUGS (17)
  1. MAXIDEX [Suspect]
     Active Substance: DEXAMETHASONE
     Route: 047
     Dates: start: 2022, end: 202305
  2. SIMBRINZA [Suspect]
     Active Substance: BRIMONIDINE TARTRATE\BRINZOLAMIDE
     Route: 047
     Dates: start: 2018
  3. METOPROLOL [Concomitant]
     Active Substance: METOPROLOL
  4. ACETAZOLAMIDE [Concomitant]
     Active Substance: ACETAZOLAMIDE
  5. TIMOLOL [Concomitant]
     Active Substance: TIMOLOL
  6. Essentiale vitamins [Concomitant]
  7. monopost (latanoprost) [Concomitant]
  8. relaxirem [Concomitant]
  9. somniferm [Concomitant]
  10. ATACAND [Concomitant]
     Active Substance: CANDESARTAN CILEXETIL
  11. FUROSEMIDE [Concomitant]
     Active Substance: FUROSEMIDE
  12. BISOPROLOL FUMARATE [Concomitant]
     Active Substance: BISOPROLOL FUMARATE
  13. IMOVANE [Concomitant]
     Active Substance: ZOPICLONE
  14. OMERAN [Concomitant]
  15. EUTHYROX [Concomitant]
     Active Substance: LEVOTHYROXINE SODIUM
  16. PASSIFLORA INCARNATA (N) (HOMEOPATHIC TINCTURE) [Concomitant]
     Active Substance: HOMEOPATHICS
  17. MAGNESIUM ASPARTATE\POTASSIUM ASPARTATE [Concomitant]
     Active Substance: MAGNESIUM ASPARTATE\POTASSIUM ASPARTATE

REACTIONS (4)
  - Hepatic pain [Unknown]
  - Burning sensation [Unknown]
  - Syncope [Not Recovered/Not Resolved]
  - Liver disorder [Unknown]

NARRATIVE: CASE EVENT DATE: 20220623
